FAERS Safety Report 14573857 (Version 1)
Quarter: 2018Q1

REPORT INFORMATION
  Report Type: Spontaneous
  Country: US (occurrence: US)
  Receive Date: 20180226
  Receipt Date: 20180226
  Transmission Date: 20180509
  Serious: No
  Sender: FDA-Public Use
  Company Number: US-SUNOVION-2018SUN000574

PATIENT

DRUGS (2)
  1. LATUDA [Suspect]
     Active Substance: LURASIDONE HYDROCHLORIDE
     Route: 048
  2. LITHIUM. [Concomitant]
     Active Substance: LITHIUM

REACTIONS (4)
  - Confusional state [Unknown]
  - Dysphemia [Unknown]
  - Anger [Unknown]
  - Balance disorder [Unknown]
